FAERS Safety Report 8471422-7 (Version None)
Quarter: 2012Q2

REPORT INFORMATION
  Report Type: 
  Country: None (occurrence: None)
  Receive Date: 20120627
  Receipt Date: 20120620
  Transmission Date: 20120825
  Serious: Yes (Hospitalization, Disabling, Other)
  Sender: FDA-Public Use
  Company Number: PHHY2012FR054050

PATIENT
  Sex: Female

DRUGS (11)
  1. MATULANE [Suspect]
     Indication: BRAIN NEOPLASM
     Dates: start: 20110901, end: 20120418
  2. KEPPRA [Concomitant]
     Dosage: 3000 MG, DAILY
     Dates: start: 20120411
  3. NEXIUM [Concomitant]
     Indication: GASTRITIS
     Dosage: 1 DF, DAILY
     Route: 048
     Dates: start: 20120427
  4. DEMECLOCYCLINE HCL [Concomitant]
  5. CHEMOTHERAPEUTICS [Concomitant]
  6. TEGRETOL [Interacting]
     Indication: SIMPLE PARTIAL SEIZURES
     Dosage: 600 MG, DAILY
     Route: 048
     Dates: start: 20120411
  7. VINCRISTINE [Interacting]
     Indication: BRAIN NEOPLASM
     Dosage: 2 MG, UNK
     Dates: start: 20110901, end: 20120510
  8. LOMUSTINE [Interacting]
     Indication: BRAIN NEOPLASM
     Dosage: 160 MG, UNK
     Dates: start: 20110901, end: 20120412
  9. VOGALENE [Concomitant]
     Indication: GASTRITIS
     Dosage: 2 DF, DAILY
     Dates: start: 20120427
  10. KEPPRA [Concomitant]
     Dosage: 2000 MG, DAILY
     Dates: start: 20120510
  11. KEPPRA [Concomitant]
     Indication: SIMPLE PARTIAL SEIZURES
     Dosage: 300 MG, DAILY

REACTIONS (6)
  - HYPONATRAEMIA [None]
  - INAPPROPRIATE ANTIDIURETIC HORMONE SECRETION [None]
  - SKIN TOXICITY [None]
  - OEDEMA PERIPHERAL [None]
  - DRUG INTERACTION [None]
  - WEIGHT DECREASED [None]
